FAERS Safety Report 8825958 (Version 2)
Quarter: 2014Q4

REPORT INFORMATION
  Report Type: Report from Study
  Country: US (occurrence: US)
  Receive Date: 20121005
  Receipt Date: 20141031
  Transmission Date: 20150529
  Serious: Yes (Death)
  Sender: FDA-Public Use
  Company Number: US-ROCHE-1131587

PATIENT
  Sex: Male

DRUGS (6)
  1. BENADRYL [Concomitant]
     Active Substance: DIPHENHYDRAMINE HYDROCHLORIDE
     Route: 040
     Dates: start: 20000207
  2. TYLENOL [Concomitant]
     Active Substance: ACETAMINOPHEN
     Route: 065
     Dates: start: 20000214
  3. RITUXAN [Suspect]
     Active Substance: RITUXIMAB
     Indication: PLASMA CELL MYELOMA
     Route: 065
     Dates: start: 20000207
  4. RITUXAN [Suspect]
     Active Substance: RITUXIMAB
     Indication: OFF LABEL USE
  5. CYTOXAN [Concomitant]
     Active Substance: CYCLOPHOSPHAMIDE
  6. EPOGEN [Concomitant]
     Active Substance: ERYTHROPOIETIN
     Dosage: 40000
     Route: 065
     Dates: start: 20000207

REACTIONS (6)
  - Muscular weakness [Unknown]
  - Oedema peripheral [Unknown]
  - Decreased appetite [Unknown]
  - Peripheral swelling [Unknown]
  - Mucosal inflammation [Unknown]
  - Death [Fatal]
